FAERS Safety Report 25505439 (Version 1)
Quarter: 2025Q3

REPORT INFORMATION
  Report Type: Spontaneous
  Country: US (occurrence: US)
  Receive Date: 20250702
  Receipt Date: 20250702
  Transmission Date: 20251021
  Serious: No
  Sender: BAYER HEALTHCARE PHARMACEUTICALS INC.
  Company Number: US-BAYER-2025A084440

PATIENT
  Age: 79 Year
  Sex: Female

DRUGS (2)
  1. BETASERON [Suspect]
     Active Substance: INTERFERON BETA-1B
     Dosage: 3 MG, QOD
  2. BETASERON [Suspect]
     Active Substance: INTERFERON BETA-1B

REACTIONS (3)
  - Arthralgia [None]
  - Pain of skin [None]
  - Feeling abnormal [None]

NARRATIVE: CASE EVENT DATE: 20250616
